FAERS Safety Report 4516596-5 (Version None)
Quarter: 2004Q4

REPORT INFORMATION
  Report Type: 
  Country: None (occurrence: None)
  Receive Date: 20041029
  Receipt Date: 20040716
  Transmission Date: 20050328
  Serious: No
  Sender: FDA-Public Use
  Company Number: 2004-118544-NL

PATIENT
  Age: 44 Year
  Sex: Female
  Weight: 56.7 kg

DRUGS (5)
  1. NUVARING [Suspect]
     Indication: CONTRACEPTION
     Dosage: DF DAILY, VAGINAL
     Route: 067
     Dates: start: 20040708
  2. VITAMIN B NOS [Concomitant]
  3. VITAMIN E [Concomitant]
  4. PRESCRIPTION DIURETICS [Concomitant]
  5. ASPIRINA INFANTIL [Concomitant]

REACTIONS (4)
  - ABDOMINAL PAIN UPPER [None]
  - GROIN PAIN [None]
  - NAUSEA [None]
  - PAIN [None]
